FAERS Safety Report 24529669 (Version 2)
Quarter: 2024Q4

REPORT INFORMATION
  Report Type: Report from Study
  Country: GB (occurrence: GB)
  Receive Date: 20241021
  Receipt Date: 20241128
  Transmission Date: 20250115
  Serious: Yes (Death)
  Sender: ABBVIE
  Company Number: GB-ABBVIE-5969888

PATIENT
  Age: 62 Year
  Sex: Female

DRUGS (1)
  1. FOSCARBIDOPA\FOSLEVODOPA [Suspect]
     Active Substance: FOSCARBIDOPA\FOSLEVODOPA
     Indication: Parkinson^s disease
     Dosage: 12MG/ 240MG SOLUTION FOR INFUSION?LAST ADMIN DATE: OCT 2024
     Route: 058
     Dates: start: 20240816

REACTIONS (1)
  - Death [Fatal]

NARRATIVE: CASE EVENT DATE: 20241004
